FAERS Safety Report 8012906 (Version 6)
Quarter: 2013Q1

REPORT INFORMATION
  Report Type: Spontaneous
  Country: BR (occurrence: BR)
  Receive Date: 20110628
  Receipt Date: 20130220
  Transmission Date: 20140127
  Serious: Yes (Hospitalization, Other)
  Sender: FDA-Public Use
  Company Number: PHHY2011BR55065

PATIENT
  Age: 56 Year
  Sex: Female

DRUGS (11)
  1. FORASEQ [Suspect]
     Indication: PULMONARY FIBROSIS
     Dosage: ONCE DAILY WHEN PRESENTED BREATHLESSNESS AND COUGH
  2. FORASEQ [Suspect]
     Dosage: TWICE DAILY WHEN PRESENTED BREATHLESSNESS AND COUGH
  3. NEXUM [Concomitant]
     Indication: GASTRIC ULCER
     Dosage: 1 DF, QD
     Route: 048
  4. ALENDRONATE SODIUM [Concomitant]
     Indication: OSTEOPOROSIS
     Dosage: 1 DF, A WEEK
     Route: 048
  5. DAFORIM [Concomitant]
     Indication: NERVOUSNESS
     Dosage: 1 DF, UNK
     Route: 048
  6. VITAMIN D [Concomitant]
     Dosage: 1 DF, QD
     Route: 048
  7. CALCIUM CITRATE [Concomitant]
     Dosage: 4 DF, UNK
     Route: 048
  8. CENTRUM SILVER [Concomitant]
     Dosage: 1 DF, QD
     Route: 048
  9. ALPRAZOLAM [Concomitant]
     Indication: SLEEP DISORDER
     Dosage: 1 DF, QD
     Route: 048
  10. ULTRACET [Concomitant]
     Indication: BONE PAIN
     Dosage: 1 DF, BID
     Route: 048
  11. CEFALIUM [Concomitant]
     Indication: HEADACHE
     Dosage: 1 DF, PRN
     Route: 048

REACTIONS (8)
  - Chronic obstructive pulmonary disease [Unknown]
  - Cough [Not Recovered/Not Resolved]
  - Dyspnoea [Recovering/Resolving]
  - Increased bronchial secretion [Not Recovered/Not Resolved]
  - Tooth disorder [Not Recovered/Not Resolved]
  - Feeling abnormal [Unknown]
  - Nervousness [Not Recovered/Not Resolved]
  - Device malfunction [Unknown]
